FAERS Safety Report 13405084 (Version 1)
Quarter: 2017Q2

REPORT INFORMATION
  Report Type: Spontaneous
  Country: US (occurrence: US)
  Receive Date: 20170405
  Receipt Date: 20170405
  Transmission Date: 20170830
  Serious: Yes (Life-Threatening, Other)
  Sender: FDA-Public Use
  Company Number: None

PATIENT
  Age: 55 Year
  Sex: Female
  Weight: 77.11 kg

DRUGS (2)
  1. OLANZAPINE (GENERIC NAME) FOR ZYPREXA USP ZYDIS [Suspect]
     Active Substance: OLANZAPINE
     Indication: PARANOIA
     Dosage: 1 PILL (1) ONCE DAILY MOUTH OR INJECTION
     Route: 048
  2. HALODOL [Concomitant]
     Active Substance: HALOPERIDOL

REACTIONS (18)
  - Hypoaesthesia [None]
  - Pyrexia [None]
  - Weight increased [None]
  - Arthralgia [None]
  - Anger [None]
  - Pruritus [None]
  - Cardiac failure [None]
  - Confusional state [None]
  - Cold-stimulus headache [None]
  - Constipation [None]
  - Agitation [None]
  - Rash erythematous [None]
  - Pain in extremity [None]
  - Fluid retention [None]
  - Dyskinesia [None]
  - Hypertension [None]
  - Dizziness [None]
  - Disturbance in attention [None]

NARRATIVE: CASE EVENT DATE: 20161020
